FAERS Safety Report 22366730 (Version 1)
Quarter: 2023Q2

REPORT INFORMATION
  Report Type: Spontaneous
  Country: US (occurrence: None)
  Receive Date: 20230524
  Receipt Date: 20230524
  Transmission Date: 20230721
  Serious: Yes (Death)
  Sender: FDA-Public Use
  Company Number: None

PATIENT
  Age: 79 Year
  Sex: Female

DRUGS (10)
  1. IBRANCE [Suspect]
     Active Substance: PALBOCICLIB
     Indication: Breast cancer female
     Dosage: FREQUENCY : DAILY;?OTHER ROUTE : 21DO7DOFF;?
     Route: 050
  2. TYNELOL WITH CODEINE #4 [Concomitant]
  3. OXYCODONE [Concomitant]
  4. VENLAFAXINE [Concomitant]
  5. LETROZOLE [Concomitant]
  6. MIRTAZAPINE [Concomitant]
  7. LEVOTHYROXINE SODIUM [Concomitant]
  8. OMEPRAZOLE [Concomitant]
  9. PRAVASTATOM SODIUM [Concomitant]
  10. DILTIAZEM [Concomitant]

REACTIONS (1)
  - Death [None]

NARRATIVE: CASE EVENT DATE: 20230522
